FAERS Safety Report 10357288 (Version 1)
Quarter: 2014Q3

REPORT INFORMATION
  Report Type: Spontaneous
  Country: US (occurrence: None)
  Receive Date: 20140730
  Receipt Date: 20140730
  Transmission Date: 20150326
  Serious: Yes (Other)
  Sender: FDA-Public Use
  Company Number: None

PATIENT
  Age: 56 Year
  Sex: Female
  Weight: 63.5 kg

DRUGS (9)
  1. OXYCODONE [Concomitant]
     Active Substance: OXYCODONE
  2. MOBIC [Concomitant]
     Active Substance: MELOXICAM
  3. LIPITOR [Concomitant]
     Active Substance: ATORVASTATIN CALCIUM
  4. ZETIA [Concomitant]
     Active Substance: EZETIMIBE
  5. OXYBATININ [Concomitant]
  6. ACYCLOVIR. [Concomitant]
     Active Substance: ACYCLOVIR
  7. IMITREX [Concomitant]
     Active Substance: SUMATRIPTAN\SUMATRIPTAN SUCCINATE
  8. PRILOSEC [Concomitant]
     Active Substance: OMEPRAZOLE MAGNESIUM
  9. OPANA ER [Suspect]
     Active Substance: OXYMORPHONE HYDROCHLORIDE
     Indication: PAIN
     Dosage: 10 MG, 1TABLET, 3XDAY, BY MOUTH
     Route: 048
     Dates: start: 20140519, end: 20140524

REACTIONS (3)
  - Aggression [None]
  - Hypoaesthesia [None]
  - Flashback [None]

NARRATIVE: CASE EVENT DATE: 20140523
